FAERS Safety Report 6014937-3 (Version None)
Quarter: 2008Q4

REPORT INFORMATION
  Report Type: 
  Country: None (occurrence: None)
  Receive Date: 20081219
  Receipt Date: 20081212
  Transmission Date: 20090506
  Serious: Yes (Hospitalization)
  Sender: FDA-Public Use
  Company Number: US-GENENTECH-273880

PATIENT
  Sex: Male
  Weight: 67 kg

DRUGS (7)
  1. BEVACIZUMAB [Suspect]
     Indication: NEUROENDOCRINE CARCINOMA
     Dosage: 7.5 MG/KG, UNK
     Route: 042
     Dates: start: 20080819
  2. XELODA [Suspect]
     Indication: NEUROENDOCRINE CARCINOMA
     Dosage: 1500 MG, BID
     Dates: start: 20080819
  3. HYTRIN [Concomitant]
     Indication: DRUG USE FOR UNKNOWN INDICATION
     Dosage: 10 MG, QD
  4. AVODART [Concomitant]
     Indication: DRUG USE FOR UNKNOWN INDICATION
     Dosage: 2.5 MG, QD
  5. PRILOSEC [Concomitant]
     Indication: DRUG USE FOR UNKNOWN INDICATION
     Dosage: 20 MG, QD
  6. MARINOL [Concomitant]
     Indication: DRUG USE FOR UNKNOWN INDICATION
  7. CELEXA [Concomitant]
     Indication: DRUG USE FOR UNKNOWN INDICATION

REACTIONS (3)
  - DEHYDRATION [None]
  - HYPOKALAEMIA [None]
  - ORTHOSTATIC HYPOTENSION [None]
